FAERS Safety Report 5186766-4 (Version None)
Quarter: 2006Q4

REPORT INFORMATION
  Report Type: 
  Country: None (occurrence: None)
  Receive Date: 20061220
  Receipt Date: 20060922
  Transmission Date: 20070319
  Serious: No
  Sender: FDA-Public Use
  Company Number: US-AMGEN-US194581

PATIENT
  Sex: Male

DRUGS (5)
  1. ENBREL [Suspect]
     Indication: PSORIASIS
     Route: 058
     Dates: start: 20060908
  2. CYCLOPHOSPHAMIDE [Concomitant]
     Route: 048
     Dates: start: 20050901
  3. LISINOPRIL [Concomitant]
  4. METFORMIN [Concomitant]
  5. FLEXERIL [Concomitant]

REACTIONS (2)
  - FURUNCLE [None]
  - TUBERCULOSIS SKIN TEST POSITIVE [None]
